FAERS Safety Report 4562400-9 (Version None)
Quarter: 2005Q1

REPORT INFORMATION
  Report Type: 
  Country: None (occurrence: None)
  Receive Date: 20050127
  Receipt Date: 20040610
  Transmission Date: 20050727
  Serious: No
  Sender: FDA-Public Use
  Company Number: US-BRISTOL-MYERS SQUIBB COMPANY-12611612

PATIENT
  Age: 56 Year
  Sex: Female
  Weight: 59 kg

DRUGS (8)
  1. KENALOG [Suspect]
     Indication: JOINT SWELLING
     Route: 030
     Dates: start: 20040608, end: 20040608
  2. KENALOG [Suspect]
     Indication: ARTHRALGIA
     Route: 030
     Dates: start: 20040608, end: 20040608
  3. TENORMIN [Concomitant]
  4. CARDIZEM [Concomitant]
  5. HYDROCHLOROTHIAZIDE [Concomitant]
  6. PREMARIN [Concomitant]
  7. COUMADIN [Concomitant]
  8. VIOXX [Concomitant]

REACTIONS (8)
  - ERYTHEMA [None]
  - FEELING HOT [None]
  - FLUSHING [None]
  - HEADACHE [None]
  - HEART RATE INCREASED [None]
  - INSOMNIA [None]
  - PAIN [None]
  - POLLAKIURIA [None]
